FAERS Safety Report 5390512-9 (Version None)
Quarter: 2007Q3

REPORT INFORMATION
  Report Type: 
  Country: None (occurrence: None)
  Receive Date: 20070712
  Receipt Date: 20070514
  Transmission Date: 20080115
  Serious: Yes (Other)
  Sender: FDA-Public Use
  Company Number: 6033480

PATIENT
  Sex: Female

DRUGS (3)
  1. MIANSERIN [Suspect]
     Indication: DEPRESSION
     Dosage: 30 MG (30 MG, 1 IN 1 D)
  2. SERTRALINE [Suspect]
     Indication: DEPRESSION
     Dosage: 100 MG (100 MG, 1 IN 1 D)
  3. LEVOTHYROXINE SODIUM [Concomitant]

REACTIONS (4)
  - CONDITION AGGRAVATED [None]
  - DRUG INTERACTION [None]
  - HYPOTHYROIDISM [None]
  - THERAPEUTIC RESPONSE UNEXPECTED [None]
